FAERS Safety Report 9113228 (Version 1)
Quarter: 2013Q1

REPORT INFORMATION
  Report Type: Spontaneous
  Country: US (occurrence: US)
  Receive Date: 20130211
  Receipt Date: 20130211
  Transmission Date: 20140127
  Serious: Yes (Other)
  Sender: FDA-Public Use
  Company Number: US-ELI_LILLY_AND_COMPANY-US201301009636

PATIENT
  Age: 76 Year
  Sex: Female
  Weight: 74.83 kg

DRUGS (11)
  1. BYDUREON [Suspect]
     Indication: INSULIN-REQUIRING TYPE 2 DIABETES MELLITUS
     Dosage: 2 MG, WEEKLY (1/W)
     Route: 058
     Dates: start: 20130127
  2. BYETTA [Suspect]
     Indication: INSULIN-REQUIRING TYPE 2 DIABETES MELLITUS
     Dosage: 5 UG, BID
     Route: 058
     Dates: start: 2005
  3. BYETTA [Suspect]
     Dosage: 10 UG, BID
     Route: 058
     Dates: end: 20130126
  4. GLUCOPHAGE [Concomitant]
     Indication: INSULIN-REQUIRING TYPE 2 DIABETES MELLITUS
     Dosage: 500 MG, UNK
     Route: 048
  5. GLIPIZIDE [Concomitant]
     Indication: INSULIN-REQUIRING TYPE 2 DIABETES MELLITUS
     Dosage: 10 MG, UNK
     Route: 048
  6. LEVEMIR [Concomitant]
     Indication: INSULIN-REQUIRING TYPE 2 DIABETES MELLITUS
     Dosage: 70 U, EACH EVENING
     Route: 058
  7. BONIVA [Concomitant]
     Dosage: UNK
     Route: 058
  8. FENOFIBRATE [Concomitant]
     Dosage: 160 MG, QD
     Route: 048
  9. ASPIRIN [Concomitant]
     Dosage: 81 MG, QD
     Route: 048
  10. NEXIUM [Concomitant]
     Indication: GASTROOESOPHAGEAL REFLUX DISEASE
     Dosage: UNK
     Route: 048
     Dates: end: 20130122
  11. LOSARTAN + HIDROCLOROTIAZIDA [Concomitant]
     Dosage: 1 DF, QD
     Route: 048

REACTIONS (14)
  - Cardiac flutter [Recovered/Resolved]
  - Urinary incontinence [Recovering/Resolving]
  - Blood glucose increased [Not Recovered/Not Resolved]
  - Gastroenteritis viral [Unknown]
  - Flank pain [Unknown]
  - Diverticulitis [Unknown]
  - Glycosylated haemoglobin increased [Unknown]
  - Weight decreased [Unknown]
  - Blood glucose decreased [Not Recovered/Not Resolved]
  - Tremor [Not Recovered/Not Resolved]
  - Nervousness [Not Recovered/Not Resolved]
  - Gastrooesophageal reflux disease [Not Recovered/Not Resolved]
  - Decreased appetite [Unknown]
  - Off label use [Not Recovered/Not Resolved]
